FAERS Safety Report 8008179-X (Version None)
Quarter: 2011Q4

REPORT INFORMATION
  Report Type: 
  Country: None (occurrence: None)
  Receive Date: 20111227
  Receipt Date: 20111222
  Transmission Date: 20120403
  Serious: Yes (Life-Threatening)
  Sender: FDA-Public Use
  Company Number: JP-ASTRAZENECA-2011SE76214

PATIENT
  Age: 66 Year
  Sex: Female

DRUGS (2)
  1. TS-1 [Concomitant]
     Dosage: DOSE UNKNOWN
     Route: 065
     Dates: start: 20081001, end: 20110601
  2. ARIMIDEX [Suspect]
     Indication: BREAST CANCER
     Route: 048
     Dates: start: 20080424, end: 20091019

REACTIONS (1)
  - ACUTE MYELOID LEUKAEMIA [None]
